FAERS Safety Report 5540651-4 (Version None)
Quarter: 2007Q4

REPORT INFORMATION
  Report Type: 
  Country: None (occurrence: None)
  Receive Date: 20071129
  Receipt Date: 20070626
  Transmission Date: 20080405
  Serious: Yes (Other)
  Sender: FDA-Public Use
  Company Number: US200705004430

PATIENT
  Age: 46 Year
  Sex: Female

DRUGS (4)
  1. ZYPREXA [Suspect]
     Indication: BIPOLAR DISORDER
     Dosage: 30 MG, DAILY (1/D), ORAL
     Route: 048
     Dates: start: 19990419, end: 20010205
  2. ELAVIL [Concomitant]
  3. KLONOPIN [Concomitant]
  4. TRAZODIL (TRAZODONE HYDROCHLORIDE) [Concomitant]

REACTIONS (21)
  - ASTHENIA [None]
  - BLOOD PRESSURE ABNORMAL [None]
  - BODY TEMPERATURE FLUCTUATION [None]
  - BREAST DISCHARGE [None]
  - CONFUSIONAL STATE [None]
  - CONSTIPATION [None]
  - CONVULSION [None]
  - DIZZINESS [None]
  - DRY MOUTH [None]
  - DYSPHAGIA [None]
  - DYSPNOEA [None]
  - FEELING ABNORMAL [None]
  - INCREASED APPETITE [None]
  - INSOMNIA [None]
  - NAUSEA [None]
  - OVERDOSE [None]
  - PARANOIA [None]
  - SOMNOLENCE [None]
  - THINKING ABNORMAL [None]
  - TREMOR [None]
  - WEIGHT INCREASED [None]
